FAERS Safety Report 18423723 (Version 1)
Quarter: 2020Q4

REPORT INFORMATION
  Report Type: Spontaneous
  Country: BR (occurrence: BR)
  Receive Date: 20201024
  Receipt Date: 20201024
  Transmission Date: 20210114
  Serious: Yes (Other)
  Sender: FDA-Public Use
  Company Number: NVSC2020BR280638

PATIENT
  Age: 33 Year
  Sex: Female

DRUGS (1)
  1. IMATINIB. [Suspect]
     Active Substance: IMATINIB MESYLATE
     Indication: CHRONIC MYELOID LEUKAEMIA
     Dosage: UNK
     Route: 065

REACTIONS (13)
  - Anaemia [Unknown]
  - Haematotoxicity [Unknown]
  - Megakaryocytes decreased [Unknown]
  - Diarrhoea [Recovering/Resolving]
  - Treatment failure [Unknown]
  - Neutropenia [Unknown]
  - Thrombocytopenia [Unknown]
  - White blood cell count decreased [Unknown]
  - Eyelid oedema [Not Recovered/Not Resolved]
  - Nausea [Recovering/Resolving]
  - Bone marrow failure [Unknown]
  - Myeloid maturation arrest [Unknown]
  - Cytogenetic analysis abnormal [Unknown]
